FAERS Safety Report 7626484-3 (Version None)
Quarter: 2011Q3

REPORT INFORMATION
  Report Type: 
  Country: None (occurrence: None)
  Receive Date: 20110701
  Receipt Date: 20100519
  Transmission Date: 20111222
  Serious: Yes (Hospitalization)
  Sender: FDA-Public Use
  Company Number: 7005509

PATIENT
  Age: 39 Year
  Sex: Female

DRUGS (2)
  1. REBIF [Suspect]
     Indication: MULTIPLE SCLEROSIS
     Dosage: 44 MCG, 3 IN 1 WK, SUBCUTANEOUS ; 8.8 MCG
     Route: 058
     Dates: start: 20060413, end: 20100401
  2. REBIF [Suspect]
     Indication: MULTIPLE SCLEROSIS
     Dosage: 44 MCG, 3 IN 1 WK, SUBCUTANEOUS ; 8.8 MCG
     Route: 058
     Dates: start: 20100101

REACTIONS (2)
  - MULTIPLE SCLEROSIS RELAPSE [None]
  - DEPRESSION [None]
